FAERS Safety Report 7755295-3 (Version None)
Quarter: 2011Q3

REPORT INFORMATION
  Report Type: 
  Country: None (occurrence: None)
  Receive Date: 20110916
  Receipt Date: 20110913
  Transmission Date: 20111222
  Serious: Yes (Hospitalization, Other)
  Sender: FDA-Public Use
  Company Number: GB-PFIZER INC-2011215528

PATIENT
  Age: 79 Year
  Sex: Female

DRUGS (1)
  1. LOPID [Suspect]
     Dosage: 600 MG, UNK

REACTIONS (1)
  - CEREBROVASCULAR ACCIDENT [None]
